FAERS Safety Report 15204006 (Version 2)
Quarter: 2019Q2

REPORT INFORMATION
  Report Type: Spontaneous
  Country: CA (occurrence: CA)
  Receive Date: 20180726
  Receipt Date: 20190513
  Transmission Date: 20190711
  Serious: Yes (Other)
  Sender: FDA-Public Use
  Company Number: CA-TEVA-2018-CA-933317

PATIENT
  Age: 25 Year
  Sex: Male
  Weight: 78 kg

DRUGS (37)
  1. BENZACLIN TOPICAL [Concomitant]
  2. ZINC GLUCONATE [Concomitant]
     Active Substance: ZINC GLUCONATE
     Dosage: FORM OF ADMIN: NOT SPECIFIED
  3. CLOTRIMAZOLE/HYDROCORTISONE [Concomitant]
     Active Substance: CLOTRIMAZOLE\HYDROCORTISONE
  4. AZITHROMYCIN ANHYDROUS. [Concomitant]
     Active Substance: AZITHROMYCIN ANHYDROUS
     Dosage: FORM OF ADMIN: NOT SPECIFIED
  5. CANESTEN-HC 1% CREAM-POWDER MIXTURE [Concomitant]
  6. CETAPHIL OILY SKIN CLEANSER [Concomitant]
  7. DOMPERIDONE [Concomitant]
     Active Substance: DOMPERIDONE
  8. FLOVENT DISKUS [Concomitant]
     Active Substance: FLUTICASONE PROPIONATE
  9. OMEGA 3-6-9 [Concomitant]
     Active Substance: FISH OIL
     Dosage: FORM OF ADMIN: NOT SPECIFIED
  10. TYLENOL EXTRA-STRENGTH TAB 500MG [Concomitant]
  11. VITAMIN D2 1000 INTERNATIONAL UNITS TABLET [Concomitant]
  12. VALPROATE SEMISODIUM [Concomitant]
     Active Substance: DIVALPROEX SODIUM
  13. ESCITALOPRAM [Suspect]
     Active Substance: ESCITALOPRAM OXALATE
     Indication: DEPRESSION
     Dosage: 15 MILLIGRAM DAILY;
     Route: 048
  14. ESCITALOPRAM [Suspect]
     Active Substance: ESCITALOPRAM OXALATE
     Indication: ANXIETY
  15. CIPRALEX [Concomitant]
     Active Substance: ESCITALOPRAM OXALATE
  16. GENTEAL MILD [Concomitant]
     Active Substance: HYPROMELLOSE 2910 (4000 MPA.S)
  17. TOVIAZ [Concomitant]
     Active Substance: FESOTERODINE FUMARATE
  18. TYLENOL [Concomitant]
     Active Substance: ACETAMINOPHEN
  19. ZYLOPRIM [Concomitant]
     Active Substance: ALLOPURINOL
  20. CALCIUM [Concomitant]
     Active Substance: CALCIUM
     Dosage: FORM OF ADMIN: NOT SPECIFIED
  21. CETAPHIL ACNE PRINCIPLES [Concomitant]
  22. CETAPHIL [Concomitant]
     Active Substance: AVOBENZONE\OCTOCRYLENE\TRICLOSAN
  23. TECTA [Concomitant]
     Active Substance: PANTOPRAZOLE MAGNESIUM
  24. ACETAMINOPHEN. [Concomitant]
     Active Substance: ACETAMINOPHEN
  25. ACZONE [Concomitant]
     Active Substance: DAPSONE
  26. DICLOFENAC [Concomitant]
     Active Substance: DICLOFENAC
  27. EPIVAL ECT 250MG [Concomitant]
  28. TEARS PLUS 1.4% [Concomitant]
  29. OTRIVIN SALINE HYPERTONIC NASAL SPRAY [Concomitant]
     Route: 045
  30. SEROQUEL [Concomitant]
     Active Substance: QUETIAPINE FUMARATE
  31. SYNTHROID [Concomitant]
     Active Substance: LEVOTHYROXINE SODIUM
     Dosage: FORM OF ADMIN: NOT SPECIFIED
  32. BENZOYL PEROXIDE/CLINDAMYCIN PHOSPHATE [Concomitant]
     Active Substance: BENZOYL PEROXIDE\CLINDAMYCIN PHOSPHATE
  33. ACETAMINOPHEN. [Concomitant]
     Active Substance: ACETAMINOPHEN
     Route: 065
  34. POLYVINYL ALCOHOL/POVIDONE [Concomitant]
  35. FLOVENT HFA [Concomitant]
     Active Substance: FLUTICASONE PROPIONATE
  36. NASACORT AQ [Concomitant]
     Active Substance: TRIAMCINOLONE ACETONIDE
     Dosage: FORM OF ADMIN:SPRAY, METERED DOSE
  37. SEROQUEL [Concomitant]
     Active Substance: QUETIAPINE FUMARATE

REACTIONS (3)
  - Mental impairment [Recovered/Resolved]
  - Product substitution issue [Recovered/Resolved]
  - General physical health deterioration [Recovered/Resolved]
